FAERS Safety Report 6065595-3 (Version None)
Quarter: 2009Q1

REPORT INFORMATION
  Report Type: 
  Country: None (occurrence: None)
  Receive Date: 20090204
  Receipt Date: 20090127
  Transmission Date: 20090719
  Serious: Yes (Other)
  Sender: FDA-Public Use
  Company Number: PT-B.I. PHARMACEUTICALS,INC./RIDGEFIELD-2009-DE-00428BY

PATIENT
  Sex: Female

DRUGS (2)
  1. PRITOR PLUS [Suspect]
     Indication: HYPERTENSION
     Dosage: 92.5MG
     Route: 048
     Dates: start: 20080901, end: 20080924
  2. PANVITOL [Concomitant]
     Indication: ASTHENIA
     Route: 048
     Dates: start: 20080901, end: 20080910

REACTIONS (3)
  - EXTRASYSTOLES [None]
  - PALPITATIONS [None]
  - VENTRICULAR EXTRASYSTOLES [None]
